FAERS Safety Report 15955888 (Version 1)
Quarter: 2019Q1

REPORT INFORMATION
  Report Type: Spontaneous
  Country: US (occurrence: US)
  Receive Date: 20190212
  Receipt Date: 20190212
  Transmission Date: 20190417
  Serious: Yes (Hospitalization, Other)
  Sender: FDA-Public Use
  Company Number: None

PATIENT
  Age: 32 Year
  Sex: Male
  Weight: 60.75 kg

DRUGS (9)
  1. APPLE CIDER VINEGAR [Concomitant]
     Active Substance: APPLE CIDER VINEGAR
  2. FISH OIL [Concomitant]
     Active Substance: FISH OIL
  3. ASTHAXANTHIN [Concomitant]
  4. SEA BUCKTHORN [Concomitant]
  5. VITAMIN D3 [Concomitant]
     Active Substance: CHOLECALCIFEROL
  6. GADAVIST [Suspect]
     Active Substance: GADOBUTROL
     Indication: CENTRAL NERVOUS SYSTEM LESION
     Dosage: ?          QUANTITY:1 INJECTION(S);OTHER FREQUENCY:ONCE;?
     Route: 042
     Dates: start: 20181024, end: 20181024
  7. HERBAL TEA [Concomitant]
  8. SPIRULINA [Concomitant]
     Active Substance: SPIRULINA
  9. MEN^S MULTIVITAMIN [Concomitant]

REACTIONS (10)
  - Asthenia [None]
  - Musculoskeletal stiffness [None]
  - Alopecia [None]
  - Nephrolithiasis [None]
  - Eye pain [None]
  - Tic [None]
  - Bone pain [None]
  - Energy increased [None]
  - Condition aggravated [None]
  - Memory impairment [None]

NARRATIVE: CASE EVENT DATE: 20190201
